FAERS Safety Report 8086087-6 (Version None)
Quarter: 2012Q1

REPORT INFORMATION
  Report Type: 
  Country: None (occurrence: None)
  Receive Date: 20120128
  Receipt Date: 20110420
  Transmission Date: 20120608
  Serious: No
  Sender: FDA-Public Use
  Company Number: US-ABBOTT-11P-163-0720582-00

PATIENT
  Age: 31 Year
  Sex: Female

DRUGS (8)
  1. ADDERALL 5 [Concomitant]
     Indication: ATTENTION DEFICIT/HYPERACTIVITY DISORDER
  2. VITAMIN B-12 [Concomitant]
     Indication: ILEECTOMY
  3. VITAMIN D [Concomitant]
     Indication: PRODUCT USED FOR UNKNOWN INDICATION
  4. HUMIRA [Suspect]
     Indication: CROHN'S DISEASE
     Dates: start: 20110201
  5. MULTI-VITAMIN [Concomitant]
     Indication: PRODUCT USED FOR UNKNOWN INDICATION
  6. LOVAZA [Concomitant]
     Indication: VITAMIN SUPPLEMENTATION
  7. CLARITIN [Concomitant]
     Indication: HYPERSENSITIVITY
  8. CALCIUM [Concomitant]
     Indication: MINERAL SUPPLEMENTATION

REACTIONS (4)
  - ACNE [None]
  - ACNE CYSTIC [None]
  - FATIGUE [None]
  - ASTHENIA [None]
